FAERS Safety Report 4751438-4 (Version None)
Quarter: 2005Q3

REPORT INFORMATION
  Report Type: 
  Country: None (occurrence: None)
  Receive Date: 20050824
  Receipt Date: 20050808
  Transmission Date: 20060218
  Serious: Yes (Other)
  Sender: FDA-Public Use
  Company Number: BR-ROCHE-413658

PATIENT
  Age: 43 Year
  Sex: Female

DRUGS (5)
  1. ROACUTAN [Suspect]
     Indication: ACNE
     Dosage: STRENGTH: 20MG
     Route: 048
     Dates: start: 20040415, end: 20050415
  2. ROACUTAN [Suspect]
     Route: 048
     Dates: start: 20040415, end: 20050801
  3. ROACUTAN [Suspect]
     Dosage: STRENGTH: 20MG CAP.
     Route: 048
     Dates: start: 20040415, end: 20041115
  4. ROACUTAN [Suspect]
     Dosage: STRENGTH: 10MG CAP.
     Route: 048
     Dates: start: 20041115, end: 20050715
  5. ROACUTAN [Suspect]
     Route: 048
     Dates: start: 20050815

REACTIONS (15)
  - ABDOMINAL PAIN UPPER [None]
  - BLOOD CHOLESTEROL INCREASED [None]
  - CONSTIPATION [None]
  - DRY EYE [None]
  - ERYTHEMA [None]
  - GASTROINTESTINAL PAIN [None]
  - HAIR DISORDER [None]
  - HEADACHE [None]
  - NAUSEA [None]
  - NODULE [None]
  - ONYCHORRHEXIS [None]
  - PAROTID GLAND ENLARGEMENT [None]
  - PHOTOSENSITIVITY REACTION [None]
  - SALIVARY GLAND NEOPLASM [None]
  - SALIVARY GLAND PAIN [None]
